FAERS Safety Report 8266031-9 (Version None)
Quarter: 2012Q2

REPORT INFORMATION
  Report Type: 
  Country: None (occurrence: None)
  Receive Date: 20120406
  Receipt Date: 20120404
  Transmission Date: 20120825
  Serious: Yes (Death, Life-Threatening, Hospitalization)
  Sender: FDA-Public Use
  Company Number: US-B.I. PHARMACEUTICALS,INC./RIDGEFIELD-2012-BP-02008BP

PATIENT
  Sex: Female
  Weight: 70 kg

DRUGS (5)
  1. PLAVIX [Suspect]
     Indication: CORONARY ARTERY DISEASE
     Dosage: 75 MG
     Route: 048
     Dates: start: 20090101, end: 20120105
  2. ANGIOMAX [Suspect]
  3. REOPRO [Suspect]
  4. PRADAXA [Suspect]
     Indication: ATRIAL FIBRILLATION
     Dosage: 300 MG
     Route: 048
     Dates: start: 20120105, end: 20120110
  5. ASPIRIN [Suspect]
     Indication: CORONARY ARTERY DISEASE
     Dosage: 81 MG
     Route: 048
     Dates: start: 20090101, end: 20120105

REACTIONS (8)
  - GASTROINTESTINAL HAEMORRHAGE [None]
  - THROMBOSIS IN DEVICE [None]
  - POST PROCEDURAL HAEMORRHAGE [None]
  - SKIN HAEMORRHAGE [None]
  - HEPATIC FAILURE [None]
  - CARDIAC ARREST [None]
  - ACUTE MYOCARDIAL INFARCTION [None]
  - RENAL FAILURE [None]
